FAERS Safety Report 24376074 (Version 1)
Quarter: 2024Q3

REPORT INFORMATION
  Report Type: Spontaneous
  Country: US (occurrence: None)
  Receive Date: 20240927
  Receipt Date: 20240927
  Transmission Date: 20241017
  Serious: No
  Sender: Public
  Company Number: None

PATIENT
  Age: 66 Year
  Sex: Male
  Weight: 50.8 kg

DRUGS (11)
  1. CABOMETYX [Suspect]
     Active Substance: CABOZANTINIB S-MALATE
     Dosage: FREQUENCY : DAILY;?
     Route: 048
     Dates: start: 20240725, end: 20240903
  2. Acetaminophen, oxyCODONE-acetaminophen [Concomitant]
  3. Albuterol, budesonide-formoterol [Concomitant]
  4. FINASTERIDE [Concomitant]
     Active Substance: FINASTERIDE
  5. GABAPENTIN [Concomitant]
     Active Substance: GABAPENTIN
  6. OMALIZUMAB [Concomitant]
     Active Substance: OMALIZUMAB
  7. OMEPRAZOLE [Concomitant]
     Active Substance: OMEPRAZOLE
  8. SILDENAFIL [Concomitant]
     Active Substance: SILDENAFIL
  9. Tarnsulosin [Concomitant]
  10. TESTOSTERONE CYPIONATE [Concomitant]
     Active Substance: TESTOSTERONE CYPIONATE
  11. NIVOLUMAB [Concomitant]
     Active Substance: NIVOLUMAB

REACTIONS (5)
  - Therapy interrupted [None]
  - Angular cheilitis [None]
  - Tenderness [None]
  - Pain [None]
  - Anaemia [None]

NARRATIVE: CASE EVENT DATE: 20240903
